FAERS Safety Report 6483509-9 (Version None)
Quarter: 2009Q4

REPORT INFORMATION
  Report Type: 
  Country: None (occurrence: None)
  Receive Date: 20091209
  Receipt Date: 20091207
  Transmission Date: 20100525
  Serious: Yes (Hospitalization)
  Sender: FDA-Public Use
  Company Number: JP-B.I. PHARMACEUTICALS,INC./RIDGEFIELD-2009-BP-11980NB

PATIENT
  Sex: Male

DRUGS (12)
  1. MICARDIS [Suspect]
     Indication: HYPERTENSION
     Dosage: 40 MG
     Route: 048
     Dates: end: 20091013
  2. GENINAX [Suspect]
     Indication: BRONCHITIS
     Dosage: 400 MG
     Route: 048
     Dates: start: 20091011, end: 20091012
  3. CEPHADOL [Concomitant]
     Indication: DIZZINESS
     Dosage: 75 MG
     Route: 048
     Dates: end: 20091013
  4. LENDORMIN [Concomitant]
     Indication: INSOMNIA
     Dosage: 0.125 MG
     Route: 048
     Dates: end: 20091013
  5. HERBESSER [Concomitant]
     Indication: HYPERTENSION
     Dosage: 60 MG
     Route: 048
     Dates: end: 20091013
  6. SERMION [Concomitant]
     Indication: CEREBRAL INFARCTION
     Dosage: 15 MG
     Route: 048
     Dates: end: 20091013
  7. NIVADIL [Concomitant]
     Indication: HYPERTENSION
     Dosage: 4 MG
     Route: 048
     Dates: end: 20091013
  8. URSO 250 [Concomitant]
     Dosage: 50 MG
     Route: 048
     Dates: end: 20091013
  9. PL/NON-PYRINE COLD PREPARATION [Concomitant]
     Indication: NASOPHARYNGITIS
     Dosage: 3 G
     Route: 048
     Dates: start: 20090918, end: 20091013
  10. ATOMIN S [Concomitant]
     Indication: COUGH
     Dosage: 90 MG
     Route: 048
     Dates: start: 20090918, end: 20091013
  11. PANTOSIN [Concomitant]
     Indication: CONSTIPATION
     Dosage: 300 MG
     Route: 048
     Dates: end: 20091013
  12. MAGMITT [Concomitant]
     Indication: CONSTIPATION
     Dosage: 1980 MG
     Route: 048
     Dates: end: 20091013

REACTIONS (3)
  - HYPERKALAEMIA [None]
  - RENAL IMPAIRMENT [None]
  - SICK SINUS SYNDROME [None]
